FAERS Safety Report 4479536-3 (Version None)
Quarter: 2004Q4

REPORT INFORMATION
  Report Type: 
  Country: None (occurrence: None)
  Receive Date: 20041015
  Receipt Date: 20041006
  Transmission Date: 20050328
  Serious: Yes (Other)
  Sender: FDA-Public Use
  Company Number: 2004237767US

PATIENT
  Age: 33 Year
  Sex: Male
  Weight: 81.6 kg

DRUGS (1)
  1. AZULFIDINE [Suspect]
     Indication: COLITIS ULCERATIVE
     Dosage: 3 G, QD, ORAL
     Route: 048
     Dates: end: 20000601

REACTIONS (2)
  - INFERTILITY [None]
  - TESTICULAR ATROPHY [None]
